FAERS Safety Report 20407122 (Version 1)
Quarter: 2022Q1

REPORT INFORMATION
  Report Type: Spontaneous
  Country: US (occurrence: US)
  Receive Date: 20220131
  Receipt Date: 20220131
  Transmission Date: 20220424
  Serious: Yes (Other)
  Sender: FDA-Public Use
  Company Number: US-BRISTOL-MYERS SQUIBB COMPANY-BMS-2022-007315

PATIENT
  Age: 60 Year
  Sex: Female

DRUGS (1)
  1. HYDROXYUREA [Suspect]
     Active Substance: HYDROXYUREA
     Indication: Product used for unknown indication
     Dosage: UNK
     Route: 065

REACTIONS (12)
  - Pneumonia [Unknown]
  - Appendicitis [Unknown]
  - Multiple organ dysfunction syndrome [Unknown]
  - Splenomegaly [Unknown]
  - Depression [Unknown]
  - Sleep terror [Unknown]
  - Dehydration [Unknown]
  - Nausea [Unknown]
  - Decreased appetite [Unknown]
  - Nail discolouration [Unknown]
  - Oedema peripheral [Unknown]
  - Sleep disorder [Unknown]
